FAERS Safety Report 25750860 (Version 4)
Quarter: 2025Q3

REPORT INFORMATION
  Report Type: Report from Study
  Country: CA (occurrence: CA)
  Receive Date: 20250902
  Receipt Date: 20250915
  Transmission Date: 20251020
  Serious: Yes (Hospitalization)
  Sender: SANOFI AVENTIS
  Company Number: CA-SA-2025SA250824

PATIENT
  Age: 78 Year
  Sex: Male
  Weight: 101 kg

DRUGS (9)
  1. ISATUXIMAB [Suspect]
     Active Substance: ISATUXIMAB
     Indication: Plasma cell myeloma
     Dosage: 940 MG, QW
     Route: 042
     Dates: start: 20250708
  2. LANSOPRAZOLE [Concomitant]
     Active Substance: LANSOPRAZOLE
  3. AMLODIPINE [Concomitant]
     Active Substance: AMLODIPINE BESYLATE
  4. CANDESARTAN [Concomitant]
     Active Substance: CANDESARTAN
  5. BISOPROLOL [Concomitant]
     Active Substance: BISOPROLOL
  6. TAMSULOSIN [Concomitant]
     Active Substance: TAMSULOSIN
  7. ROSUVASTATIN CALCIUM [Concomitant]
     Active Substance: ROSUVASTATIN CALCIUM
  8. DUTASTERIDE [Concomitant]
     Active Substance: DUTASTERIDE
  9. VITAMIN D [Concomitant]
     Active Substance: VITAMIN D NOS

REACTIONS (3)
  - COVID-19 [Recovered/Resolved]
  - Malaise [Recovered/Resolved]
  - Product prescribing error [Unknown]

NARRATIVE: CASE EVENT DATE: 20250101
